FAERS Safety Report 11914693 (Version 3)
Quarter: 2017Q1

REPORT INFORMATION
  Report Type: Report from Study
  Country: BR (occurrence: BR)
  Receive Date: 20160113
  Receipt Date: 20170215
  Transmission Date: 20170428
  Serious: Yes (Life-Threatening, Hospitalization, Other)
  Sender: FDA-Public Use
  Company Number: PHHY2016BR003250

PATIENT
  Sex: Female
  Weight: 70 kg

DRUGS (2)
  1. DIOVAN HCT [Suspect]
     Active Substance: HYDROCHLOROTHIAZIDE\VALSARTAN
     Indication: HYPERTENSION
     Dosage: 1 DF, QD (HYDROCHLOROTHIAZIDE 12.5 MG, VALSARTAN 160 MG)
     Route: 048
  2. MORPHINE [Concomitant]
     Active Substance: MORPHINE
     Indication: PRODUCT USED FOR UNKNOWN INDICATION
     Dosage: UNK
     Route: 065

REACTIONS (13)
  - Headache [Recovered/Resolved]
  - Varicella zoster virus infection [Unknown]
  - Malaise [Recovering/Resolving]
  - Feeling abnormal [Unknown]
  - Concomitant disease aggravated [Recovering/Resolving]
  - Anxiety [Unknown]
  - Facial neuralgia [Unknown]
  - Blood pressure increased [Recovered/Resolved]
  - Body height decreased [Unknown]
  - Erysipelas [Recovered/Resolved]
  - Weight decreased [Unknown]
  - Trigeminal neuralgia [Unknown]
  - Labyrinthitis [Recovering/Resolving]
